FAERS Safety Report 8773622 (Version 1)
Quarter: 2012Q4

REPORT INFORMATION
  Report Type: Report from Study
  Country: BG (occurrence: BG)
  Receive Date: 20120907
  Receipt Date: 20120907
  Transmission Date: 20130627
  Serious: Yes (Hospitalization)
  Sender: FDA-Public Use
  Company Number: BG-JNJFOC-20111201266

PATIENT
  Age: 40 Year
  Sex: Female
  Weight: 62 kg

DRUGS (2)
  1. GOLIMUMAB [Suspect]
     Indication: COLITIS ULCERATIVE
     Route: 058
     Dates: start: 20111003, end: 20111031
  2. MESALAZIN [Concomitant]
     Indication: COLITIS ULCERATIVE
     Route: 048

REACTIONS (1)
  - Pulmonary tuberculosis [Recovered/Resolved]
